FAERS Safety Report 4500550-3 (Version None)
Quarter: 2004Q4

REPORT INFORMATION
  Report Type: 
  Country: None (occurrence: None)
  Receive Date: 20041112
  Receipt Date: 20041112
  Transmission Date: 20050328
  Serious: Yes (Other)
  Sender: FDA-Public Use
  Company Number: None

PATIENT
  Age: 54 Year
  Sex: Female

DRUGS (2)
  1. GEODON [Suspect]
     Indication: CONVULSION
     Dosage: 80 MG BID
     Dates: start: 20040421
  2. GEODON [Suspect]
     Indication: IMPULSE-CONTROL DISORDER
     Dosage: 80 MG BID
     Dates: start: 20040421

REACTIONS (2)
  - CONDITION AGGRAVATED [None]
  - CONVULSION [None]
